FAERS Safety Report 5468171-6 (Version None)
Quarter: 2007Q3

REPORT INFORMATION
  Report Type: 
  Country: None (occurrence: None)
  Receive Date: 20070926
  Receipt Date: 20070912
  Transmission Date: 20080115
  Serious: Yes (Other)
  Sender: FDA-Public Use
  Company Number: US-ELI_LILLY_AND_COMPANY-US200707006341

PATIENT
  Sex: Female

DRUGS (3)
  1. FORTEO [Suspect]
     Indication: OSTEOPOROSIS
     Dosage: UNK, UNK
     Dates: start: 20040101
  2. FORTEO [Suspect]
  3. DIURETICS [Concomitant]

REACTIONS (5)
  - BONE DENSITY DECREASED [None]
  - HEPATITIS C [None]
  - KNEE ARTHROPLASTY [None]
  - PAIN [None]
  - SHOULDER ARTHROPLASTY [None]
